FAERS Safety Report 10634334 (Version 3)
Quarter: 2015Q1

REPORT INFORMATION
  Report Type: Spontaneous
  Country: US (occurrence: US)
  Receive Date: 20141205
  Receipt Date: 20150213
  Transmission Date: 20150720
  Serious: Yes (Death)
  Sender: FDA-Public Use
  Company Number: US-ASTELLAS-2014US015603

PATIENT
  Age: 90 Year
  Sex: Male

DRUGS (1)
  1. XTANDI [Suspect]
     Active Substance: ENZALUTAMIDE
     Indication: PROSTATE CANCER
     Route: 048
     Dates: start: 20141003

REACTIONS (8)
  - Oropharyngeal pain [Unknown]
  - Death [Fatal]
  - Throat irritation [Unknown]
  - Oral discomfort [Unknown]
  - Foreign body [Recovered/Resolved]
  - Decreased appetite [Recovering/Resolving]
  - Weight decreased [Unknown]
  - Laryngitis [Unknown]

NARRATIVE: CASE EVENT DATE: 20150130
